FAERS Safety Report 8137955-8 (Version None)
Quarter: 2012Q1

REPORT INFORMATION
  Report Type: 
  Country: None (occurrence: None)
  Receive Date: 20120213
  Receipt Date: 20120202
  Transmission Date: 20120608
  Serious: Yes (Life-Threatening, Hospitalization)
  Sender: FDA-Public Use
  Company Number: DKLU1076562

PATIENT
  Age: 7 Year
  Sex: Male

DRUGS (1)
  1. ELSPAR [Suspect]
     Indication: PRECURSOR B-LYMPHOBLASTIC LYMPHOMA

REACTIONS (7)
  - COMPLEX PARTIAL SEIZURES [None]
  - DEPRESSED LEVEL OF CONSCIOUSNESS [None]
  - BRAIN HERNIATION [None]
  - METASTASES TO MENINGES [None]
  - POSTERIOR REVERSIBLE ENCEPHALOPATHY SYNDROME [None]
  - CARDIAC ARREST [None]
  - BLOOD PRESSURE INCREASED [None]
